FAERS Safety Report 24527898 (Version 1)
Quarter: 2024Q4

REPORT INFORMATION
  Report Type: Spontaneous
  Country: US (occurrence: US)
  Receive Date: 20241021
  Receipt Date: 20241021
  Transmission Date: 20250114
  Serious: No
  Sender: BRISTOL-MYERS SQUIBB COMPANY
  Company Number: US-BRISTOL-MYERS SQUIBB COMPANY-2024-164892

PATIENT
  Age: 53 Year
  Sex: Male

DRUGS (1)
  1. POMALYST [Suspect]
     Active Substance: POMALIDOMIDE
     Indication: Primary amyloidosis
     Route: 048
     Dates: start: 20240715

REACTIONS (3)
  - Asthenia [Unknown]
  - Tremor [Unknown]
  - Off label use [Unknown]

NARRATIVE: CASE EVENT DATE: 20241010
